FAERS Safety Report 18200974 (Version 1)
Quarter: 2020Q3

REPORT INFORMATION
  Report Type: Other
  Country: FR (occurrence: FR)
  Receive Date: 20200827
  Receipt Date: 20200827
  Transmission Date: 20201103
  Serious: Yes (Hospitalization)
  Sender: FDA-Public Use
  Company Number: FR-CADILA HEALTHCARE LIMITED-FR-ZYDUS-035184

PATIENT

DRUGS (8)
  1. DIAMICRON [Suspect]
     Active Substance: GLICLAZIDE
     Indication: TYPE 2 DIABETES MELLITUS
     Dosage: 120 MILLIGRAM,(INTERVAL :1 DAYS)
     Route: 048
     Dates: start: 2009, end: 20190208
  2. CRESTOR [Suspect]
     Active Substance: ROSUVASTATIN CALCIUM
     Indication: DYSLIPIDAEMIA
     Dosage: 10 MILLIGRAM
     Route: 048
     Dates: start: 2012, end: 20190213
  3. PAROXETINE. [Concomitant]
     Active Substance: PAROXETINE
     Indication: PRODUCT USED FOR UNKNOWN INDICATION
     Dosage: UNK
     Route: 065
  4. ATENOLOL. [Concomitant]
     Active Substance: ATENOLOL
     Indication: PRODUCT USED FOR UNKNOWN INDICATION
     Dosage: UNK
     Route: 065
  5. LEVOTHYROX [Concomitant]
     Active Substance: LEVOTHYROXINE
     Indication: PRODUCT USED FOR UNKNOWN INDICATION
     Dosage: UNK
     Route: 065
  6. METFORMIN [Suspect]
     Active Substance: METFORMIN HYDROCHLORIDE
     Indication: TYPE 2 DIABETES MELLITUS
     Dosage: 2500 MILLIGRAM,(INTERVAL :1 DAYS)
     Route: 048
     Dates: start: 1999, end: 20190208
  7. XARELTO [Suspect]
     Active Substance: RIVAROXABAN
     Indication: ATRIAL FIBRILLATION
     Dosage: 15 MILLIGRAM
     Route: 048
     Dates: start: 201806, end: 20190207
  8. PERINDOPRIL [Suspect]
     Active Substance: PERINDOPRIL
     Indication: HYPERTENSION
     Dosage: 4 MILLIGRAM
     Route: 048
     Dates: start: 2009, end: 20190203

REACTIONS (3)
  - Epistaxis [Recovered/Resolved]
  - Metabolic acidosis [Recovered/Resolved]
  - Autoimmune nephritis [Not Recovered/Not Resolved]

NARRATIVE: CASE EVENT DATE: 20190207
